FAERS Safety Report 11856555 (Version 1)
Quarter: 2015Q4

REPORT INFORMATION
  Report Type: Spontaneous
  Country: US (occurrence: US)
  Receive Date: 20151221
  Receipt Date: 20151221
  Transmission Date: 20160305
  Serious: Yes (Hospitalization)
  Sender: FDA-Public Use
  Company Number: US-PFIZER INC-2015398905

PATIENT
  Sex: Male

DRUGS (1)
  1. GABAPENTIN. [Suspect]
     Active Substance: GABAPENTIN
     Indication: DIABETIC NEUROPATHY
     Dosage: 800 MG, 4-5 X A DAY

REACTIONS (5)
  - Drug ineffective [Not Recovered/Not Resolved]
  - Chest pain [Unknown]
  - Disease progression [Unknown]
  - Diabetic neuropathy [Unknown]
  - Overdose [Unknown]
